FAERS Safety Report 9840433 (Version 1)
Quarter: 2014Q1

REPORT INFORMATION
  Report Type: Spontaneous
  Country: US (occurrence: None)
  Receive Date: 20140121
  Receipt Date: 20140121
  Transmission Date: 20141002
  Serious: Yes (Other)
  Sender: FDA-Public Use
  Company Number: None

PATIENT
  Age: 19 Year
  Sex: Female
  Weight: 53.98 kg

DRUGS (2)
  1. CARBAMAZEPINE [Suspect]
     Indication: DEPRESSION
     Route: 048
     Dates: start: 201401, end: 20140108
  2. CARBAMAZEPINE [Suspect]
     Indication: AFFECTIVE DISORDER
     Route: 048
     Dates: start: 201401, end: 20140108

REACTIONS (3)
  - Urticaria [None]
  - Swollen tongue [None]
  - Lip swelling [None]
